FAERS Safety Report 10935716 (Version 3)
Quarter: 2016Q3

REPORT INFORMATION
  Report Type: Spontaneous
  Country: GB (occurrence: GB)
  Receive Date: 20150320
  Receipt Date: 20160801
  Transmission Date: 20161109
  Serious: Yes (Other)
  Sender: FDA-Public Use
  Company Number: GB-MUNDIPHARMA DS AND PHARMACOVIGILANCE-GBR-2015-0026309

PATIENT
  Age: 35 Year
  Sex: Male

DRUGS (2)
  1. OXYCONTIN [Suspect]
     Active Substance: OXYCODONE HYDROCHLORIDE
     Indication: PAIN
     Dosage: 8 TABLETS DAILY
     Route: 048
     Dates: start: 2009
  2. OXYNORM CAPSULES 20 MG [Suspect]
     Active Substance: OXYCODONE HYDROCHLORIDE
     Indication: PAIN
     Dosage: 8 TABLETS DAILY
     Route: 065
     Dates: start: 2014

REACTIONS (29)
  - Pruritus [Unknown]
  - Depression [Unknown]
  - Dyspnoea [Unknown]
  - Weight decreased [Unknown]
  - Arrhythmia [Unknown]
  - Hair colour changes [Unknown]
  - Therapeutic response decreased [Unknown]
  - Dental caries [Unknown]
  - Confusional state [Unknown]
  - Product taste abnormal [Unknown]
  - Drug rehabilitation [Unknown]
  - Mouth haemorrhage [Unknown]
  - Skin discomfort [Unknown]
  - Chest pain [Unknown]
  - Drug effect decreased [Unknown]
  - Disturbance in sexual arousal [Unknown]
  - Suicide attempt [Unknown]
  - Product physical consistency issue [Unknown]
  - Seizure [Unknown]
  - Bone pain [Unknown]
  - Lethargy [Unknown]
  - Amnesia [Unknown]
  - Medication residue present [Unknown]
  - Diarrhoea [Unknown]
  - Tremor [Unknown]
  - Drug dependence [Unknown]
  - Tongue biting [Unknown]
  - Vomiting [Unknown]
  - Drug ineffective [Unknown]
